FAERS Safety Report 8031844-5 (Version None)
Quarter: 2012Q1

REPORT INFORMATION
  Report Type: 
  Country: None (occurrence: None)
  Receive Date: 20120109
  Receipt Date: 20120104
  Transmission Date: 20120608
  Serious: Yes (Life-Threatening)
  Sender: FDA-Public Use
  Company Number: US-ASTRAZENECA-2012SE00556

PATIENT
  Age: 35 Year
  Sex: Male
  Weight: 102.1 kg

DRUGS (4)
  1. SEROQUEL [Suspect]
     Indication: DEPRESSION
     Route: 048
  2. CELEXA [Concomitant]
  3. SEROQUEL [Suspect]
     Indication: SUICIDAL IDEATION
     Route: 048
  4. DEMATROPINE [Concomitant]

REACTIONS (4)
  - OFF LABEL USE [None]
  - SUICIDAL IDEATION [None]
  - STRESS [None]
  - DRUG DOSE OMISSION [None]
